FAERS Safety Report 19010301 (Version 3)
Quarter: 2021Q2

REPORT INFORMATION
  Report Type: Report from Study
  Country: None (occurrence: US)
  Receive Date: 20210316
  Receipt Date: 20210424
  Transmission Date: 20210717
  Serious: Yes (Hospitalization, Other)
  Sender: FDA-Public Use
  Company Number: US-ABBVIE-20K-163-3654431-00

PATIENT
  Age: 84 Year
  Sex: Male

DRUGS (3)
  1. VENCLEXTA [Suspect]
     Active Substance: VENETOCLAX
     Indication: PLASMA CELL MYELOMA
     Dosage: TAKE 4 TABLETS BY MOUTH DAILY
     Route: 048
     Dates: end: 20210303
  2. VENCLEXTA [Suspect]
     Active Substance: VENETOCLAX
     Route: 048
  3. VENCLEXTA [Suspect]
     Active Substance: VENETOCLAX
     Route: 048

REACTIONS (4)
  - Off label use [Unknown]
  - Dialysis [Unknown]
  - Herpes zoster [Unknown]
  - COVID-19 [Unknown]

NARRATIVE: CASE EVENT DATE: 202012
